FAERS Safety Report 7122073-8 (Version None)
Quarter: 2010Q4

REPORT INFORMATION
  Report Type: 
  Country: None (occurrence: None)
  Receive Date: 20101122
  Receipt Date: 20101122
  Transmission Date: 20110411
  Serious: Yes (Other)
  Sender: FDA-Public Use
  Company Number: None

PATIENT
  Sex: Male
  Weight: 117.9352 kg

DRUGS (2)
  1. OXYCONTIN [Suspect]
     Indication: ARTHRALGIA
     Dosage: 60MG 3 A DAY PO
     Route: 048
     Dates: start: 20070301, end: 20101121
  2. OXYCONTIN [Suspect]
     Indication: BACK PAIN
     Dosage: 60MG 3 A DAY PO
     Route: 048
     Dates: start: 20070301, end: 20101121

REACTIONS (6)
  - CONSTIPATION [None]
  - DRUG WITHDRAWAL SYNDROME [None]
  - HYPERHIDROSIS [None]
  - PRODUCT QUALITY ISSUE [None]
  - TREMOR [None]
  - VOMITING [None]
